FAERS Safety Report 8974842 (Version 1)
Quarter: 2012Q4

REPORT INFORMATION
  Report Type: 
  Country: CN (occurrence: CN)
  Receive Date: 20121219
  Receipt Date: 20121219
  Transmission Date: 20130627
  Serious: Yes (Other)
  Sender: FDA-Public Use
  Company Number: PHHY2012CN108767

PATIENT
  Weight: 56 kg

DRUGS (1)
  1. DIOVAN [Suspect]
     Indication: CARDIAC FAILURE CONGESTIVE
     Dosage: 1 capsule daily
     Route: 048
     Dates: start: 20100415, end: 20100416

REACTIONS (7)
  - Aortic valve stenosis [Unknown]
  - Aortic valve incompetence [Unknown]
  - Mitral valve incompetence [Unknown]
  - Tricuspid valve incompetence [Unknown]
  - Arrhythmia [Unknown]
  - Oedema peripheral [Unknown]
  - Rales [Unknown]
